FAERS Safety Report 21230642 (Version 3)
Quarter: 2022Q4

REPORT INFORMATION
  Report Type: Spontaneous
  Country: JP (occurrence: JP)
  Receive Date: 20220818
  Receipt Date: 20221005
  Transmission Date: 20230112
  Serious: Yes (Other)
  Sender: FDA-Public Use
  Company Number: JP-NBI-J202214047BIPI

PATIENT
  Age: 75 Year
  Sex: Female

DRUGS (2)
  1. PRAMIPEXOLE [Suspect]
     Active Substance: PRAMIPEXOLE
     Indication: Parkinson^s disease
     Route: 048
     Dates: start: 20110525, end: 20210811
  2. PRAMIPEXOLE [Suspect]
     Active Substance: PRAMIPEXOLE
     Route: 048
     Dates: start: 20210811, end: 202109

REACTIONS (3)
  - Neuroleptic malignant syndrome [Unknown]
  - Somnolence [Unknown]
  - Dehydration [Unknown]

NARRATIVE: CASE EVENT DATE: 20210801
